FAERS Safety Report 6388197-8 (Version None)
Quarter: 2009Q4

REPORT INFORMATION
  Report Type: 
  Country: None (occurrence: None)
  Receive Date: 20091001
  Receipt Date: 20091001
  Transmission Date: 20100525
  Serious: Yes (Other)
  Sender: FDA-Public Use
  Company Number: None

PATIENT
  Age: 73 Year
  Sex: Male
  Weight: 106.5953 kg

DRUGS (1)
  1. JANUVIA [Suspect]
     Indication: DIABETES MELLITUS
     Dosage: 100 MG 1 X/DAY ORAL MERCK 00006027731 #90
     Route: 048
     Dates: start: 20080701, end: 20090912

REACTIONS (9)
  - EPISTAXIS [None]
  - FALL [None]
  - FATIGUE [None]
  - LACRIMATION INCREASED [None]
  - NASAL DISCOMFORT [None]
  - NASOPHARYNGITIS [None]
  - PRURITUS [None]
  - RESPIRATORY DISTRESS [None]
  - SOMNOLENCE [None]
